FAERS Safety Report 20373027 (Version 1)
Quarter: 2022Q1

REPORT INFORMATION
  Report Type: Spontaneous
  Country: US (occurrence: US)
  Receive Date: 20220125
  Receipt Date: 20220125
  Transmission Date: 20220423
  Serious: No
  Sender: FDA-Public Use
  Company Number: US-009507513-2201USA003824

PATIENT
  Age: 54 Year
  Sex: Female

DRUGS (2)
  1. NOXAFIL [Suspect]
     Active Substance: POSACONAZOLE
     Indication: Fungal disease carrier
     Dosage: 400 MG TWICE DAILY FOR 3 MONTHS
     Route: 048
  2. AMPHOTERICIN B [Concomitant]
     Active Substance: AMPHOTERICIN B
     Indication: Fungal disease carrier
     Dosage: 180 MG EVERY DAY FOR 6 WEEKS

REACTIONS (1)
  - Product use in unapproved indication [Unknown]
